FAERS Safety Report 20503251 (Version 2)
Quarter: 2022Q2

REPORT INFORMATION
  Report Type: Spontaneous
  Country: US (occurrence: None)
  Receive Date: 20220222
  Receipt Date: 20220406
  Transmission Date: 20220721
  Serious: Yes (Other)
  Sender: FDA-Public Use
  Company Number: 2022A073056

PATIENT
  Sex: Female
  Weight: 82.6 kg

DRUGS (1)
  1. FASENRA [Suspect]
     Active Substance: BENRALIZUMAB
     Indication: Asthma
     Route: 058

REACTIONS (10)
  - Asthma [Unknown]
  - Viral infection [Unknown]
  - Illness [Unknown]
  - Pain [Unknown]
  - Pyrexia [Unknown]
  - Chills [Unknown]
  - Fatigue [Unknown]
  - Hypersensitivity [Unknown]
  - Pneumonia [Unknown]
  - Abdominal pain upper [Unknown]
